FAERS Safety Report 5941828-6 (Version None)
Quarter: 2008Q4

REPORT INFORMATION
  Report Type: 
  Country: None (occurrence: None)
  Receive Date: 20081105
  Receipt Date: 20081104
  Transmission Date: 20090506
  Serious: Yes (Death)
  Sender: FDA-Public Use
  Company Number: JP-ASTRAZENECA-2008AP08449

PATIENT
  Age: 66 Year
  Sex: Male

DRUGS (2)
  1. ZOLADEX [Suspect]
     Indication: PROSTATE CANCER
     Route: 058
     Dates: start: 20080917, end: 20081015
  2. PROSTAL [Suspect]
     Dosage: DOSE UNKNOWN
     Route: 048
     Dates: start: 20080917

REACTIONS (1)
  - HEPATITIS FULMINANT [None]
